FAERS Safety Report 19521057 (Version 1)
Quarter: 2021Q3

REPORT INFORMATION
  Report Type: Spontaneous
  Country: SE (occurrence: SE)
  Receive Date: 20210712
  Receipt Date: 20210712
  Transmission Date: 20211014
  Serious: Yes (Other)
  Sender: FDA-Public Use
  Company Number: SE-NALPROPION PHARMACEUTICALS INC.-2021-013376

PATIENT

DRUGS (1)
  1. MYSIMBA (NALTREXONE HCL/BUPROPION HCL) PROLONGED?RELEASE TABLETS [Suspect]
     Active Substance: BUPROPION HYDROCHLORIDE\NALTREXONE HYDROCHLORIDE
     Indication: OVERWEIGHT
     Dosage: UNK
     Route: 065

REACTIONS (1)
  - Renal failure [Unknown]
